FAERS Safety Report 6081262-4 (Version None)
Quarter: 2009Q1

REPORT INFORMATION
  Report Type: 
  Country: None (occurrence: None)
  Receive Date: 20090213
  Receipt Date: 20090203
  Transmission Date: 20090719
  Serious: Yes (Other)
  Sender: FDA-Public Use
  Company Number: POMP-1000441

PATIENT
  Age: 60 Year
  Sex: Male
  Weight: 120 kg

DRUGS (16)
  1. MYOZYME [Suspect]
     Indication: GLYCOGEN STORAGE DISEASE TYPE II
     Dosage: 20 MG/KG, Q2W, INTRAVENOUS
     Route: 042
     Dates: start: 20060926
  2. LORATADINE [Concomitant]
  3. METHYLSULFONYLMETHANE (METHYLSULFONYLMETHANE) [Concomitant]
  4. DARVOCET-N 100 [Concomitant]
  5. SYNTHROID [Concomitant]
  6. FELDENE [Concomitant]
  7. SULAR [Concomitant]
  8. CLONIDINE [Concomitant]
  9. HYDROCHLOROTHIAZIDE [Concomitant]
  10. POTASSIUM CHLORIDE [Concomitant]
  11. BENICAR [Concomitant]
  12. LISINOPRIL [Concomitant]
  13. CALCIUM CARBONATE (CALCIUM CARBONATE) [Concomitant]
  14. RANITIDINE [Concomitant]
  15. ACETAMINOPHEN [Concomitant]
  16. METHYLPREDNISOLONE 16MG TAB [Concomitant]

REACTIONS (17)
  - ANGIOEDEMA [None]
  - ARTHRALGIA [None]
  - BLOOD PRESSURE INCREASED [None]
  - CHEST DISCOMFORT [None]
  - CHILLS [None]
  - DYSPEPSIA [None]
  - FLUSHING [None]
  - HEADACHE [None]
  - INFUSION RELATED REACTION [None]
  - MUSCULAR WEAKNESS [None]
  - MYALGIA [None]
  - PRURITUS [None]
  - PRURITUS GENERALISED [None]
  - RASH [None]
  - SPEECH DISORDER [None]
  - TREMOR [None]
  - URTICARIA [None]
